FAERS Safety Report 13400405 (Version 1)
Quarter: 2017Q2

REPORT INFORMATION
  Report Type: Other
  Country: NZ (occurrence: NZ)
  Receive Date: 20170404
  Receipt Date: 20170404
  Transmission Date: 20170830
  Serious: Yes (Hospitalization, Other)
  Sender: FDA-Public Use
  Company Number: NZ-DEXPHARM-20170493

PATIENT
  Age: 51 Year
  Sex: Female

DRUGS (7)
  1. OMEPRAZOLE. [Suspect]
     Active Substance: OMEPRAZOLE
  2. METHOTREXATE. [Concomitant]
     Active Substance: METHOTREXATE
  3. FELODIPINE. [Concomitant]
     Active Substance: FELODIPINE
  4. CERTIRIZINE [Concomitant]
  5. FOLATE [Concomitant]
     Active Substance: FOLATE SODIUM
  6. OMEPRAZOLE. [Suspect]
     Active Substance: OMEPRAZOLE
     Indication: GASTROOESOPHAGEAL REFLUX DISEASE
  7. ASPIRIN. [Concomitant]
     Active Substance: ASPIRIN

REACTIONS (1)
  - Hypomagnesaemia [Recovered/Resolved]
